FAERS Safety Report 11621503 (Version 8)
Quarter: 2024Q3

REPORT INFORMATION
  Report Type: Report from Study
  Country: CA (occurrence: CA)
  Receive Date: 20151013
  Receipt Date: 20240801
  Transmission Date: 20241017
  Serious: Yes (Other)
  Sender: ROCHE
  Company Number: CA-ROCHE-1620457

PATIENT
  Age: 69 Year
  Sex: Female
  Weight: 52 kg

DRUGS (26)
  1. ACTEMRA [Suspect]
     Active Substance: TOCILIZUMAB
     Indication: Rheumatoid arthritis
     Dosage: NO PIRS RECEIVED BETWEEN 20/DEC/2016 TO 14/JUL/2020 INFUSIONS.
     Route: 042
     Dates: start: 20150717, end: 20200714
  2. ACTEMRA [Suspect]
     Active Substance: TOCILIZUMAB
     Route: 042
     Dates: start: 20200811
  3. ACTEMRA [Suspect]
     Active Substance: TOCILIZUMAB
     Route: 042
  4. ACTEMRA [Suspect]
     Active Substance: TOCILIZUMAB
     Route: 042
  5. ACTEMRA [Suspect]
     Active Substance: TOCILIZUMAB
     Route: 042
  6. ACTEMRA [Suspect]
     Active Substance: TOCILIZUMAB
     Route: 042
  7. ACTEMRA [Suspect]
     Active Substance: TOCILIZUMAB
     Route: 042
  8. ACTEMRA [Suspect]
     Active Substance: TOCILIZUMAB
     Route: 042
  9. ACTEMRA [Suspect]
     Active Substance: TOCILIZUMAB
     Route: 042
  10. ACTEMRA [Suspect]
     Active Substance: TOCILIZUMAB
     Route: 042
  11. ACTEMRA [Suspect]
     Active Substance: TOCILIZUMAB
     Route: 042
  12. ACTEMRA [Suspect]
     Active Substance: TOCILIZUMAB
     Route: 042
  13. ACTEMRA [Suspect]
     Active Substance: TOCILIZUMAB
     Route: 042
  14. ACTEMRA [Suspect]
     Active Substance: TOCILIZUMAB
     Route: 042
  15. ACTEMRA [Suspect]
     Active Substance: TOCILIZUMAB
     Route: 042
  16. ACTEMRA [Suspect]
     Active Substance: TOCILIZUMAB
     Route: 042
  17. ACTEMRA [Suspect]
     Active Substance: TOCILIZUMAB
     Route: 042
  18. ACTEMRA [Suspect]
     Active Substance: TOCILIZUMAB
     Route: 042
  19. ACLASTA [Concomitant]
     Active Substance: ZOLEDRONIC ACID
     Indication: Osteoporosis
  20. ARTHROTEC [Concomitant]
     Active Substance: DICLOFENAC SODIUM\MISOPROSTOL
     Indication: Product used for unknown indication
  21. CALCIUM [Concomitant]
     Active Substance: CALCIUM
     Indication: Product used for unknown indication
  22. PREDNISONE [Concomitant]
     Active Substance: PREDNISONE
  23. PREGABALIN [Concomitant]
     Active Substance: PREGABALIN
     Indication: Arthralgia
     Dates: start: 2020
  24. SULFASALAZINE [Concomitant]
     Active Substance: SULFASALAZINE
     Indication: Product used for unknown indication
  25. SYNTHROID [Concomitant]
     Active Substance: LEVOTHYROXINE SODIUM
     Indication: Product used for unknown indication
  26. VITAMIN D [Concomitant]
     Active Substance: VITAMIN D NOS

REACTIONS (31)
  - Rectal ulcer [Unknown]
  - Spinal disorder [Unknown]
  - Blood pressure diastolic abnormal [Unknown]
  - Heart rate decreased [Unknown]
  - Mouth ulceration [Unknown]
  - Eye discharge [Unknown]
  - Blood pressure diastolic increased [Unknown]
  - Oxygen saturation decreased [Unknown]
  - Blood pressure systolic increased [Unknown]
  - Blood pressure fluctuation [Unknown]
  - Infusion related reaction [Recovered/Resolved]
  - Weight decreased [Not Recovered/Not Resolved]
  - Abdominal pain lower [Unknown]
  - Blood pressure systolic abnormal [Unknown]
  - Blood pressure diastolic decreased [Unknown]
  - Blood pressure systolic abnormal [Unknown]
  - Hypertension [Unknown]
  - Injection site pain [Unknown]
  - Asthenia [Recovering/Resolving]
  - Headache [Recovering/Resolving]
  - Feeling hot [Unknown]
  - Fatigue [Unknown]
  - Poor venous access [Unknown]
  - Blood pressure increased [Unknown]
  - Drug hypersensitivity [Unknown]
  - Weight increased [Unknown]
  - COVID-19 [Recovering/Resolving]
  - Arthralgia [Unknown]
  - Pelvic pain [Not Recovered/Not Resolved]
  - Pain [Not Recovered/Not Resolved]
  - Pubic pain [Not Recovered/Not Resolved]

NARRATIVE: CASE EVENT DATE: 20150810
